FAERS Safety Report 7965848-5 (Version None)
Quarter: 2011Q4

REPORT INFORMATION
  Report Type: 
  Country: None (occurrence: None)
  Receive Date: 20111208
  Receipt Date: 20111129
  Transmission Date: 20120403
  Serious: Yes (Hospitalization, Other)
  Sender: FDA-Public Use
  Company Number: US-BAYER-201031874NA

PATIENT
  Age: 40 Year
  Sex: Female
  Weight: 88 kg

DRUGS (7)
  1. YAZ [Suspect]
     Indication: ORAL CONTRACEPTION
     Dosage: UNK
     Dates: start: 20071001, end: 20090901
  2. ACIPHEX [Concomitant]
     Indication: GASTROOESOPHAGEAL REFLUX DISEASE
     Dosage: 1-20 MG TABLET
     Dates: start: 20090201
  3. ALPRAZOLAM [Concomitant]
     Indication: ANXIETY
     Dosage: UNK
     Dates: start: 20070101, end: 20100101
  4. YASMIN [Suspect]
     Indication: ORAL CONTRACEPTION
     Dosage: UNK
     Route: 048
     Dates: start: 20030701, end: 20070901
  5. BENICAR [Concomitant]
     Indication: HYPERTENSION
     Dosage: UNK
     Dates: start: 20060101, end: 20100101
  6. LEXAPRO [Concomitant]
     Indication: DEPRESSION
     Dosage: UNK
     Dates: start: 20070101
  7. RHINOCORT [Concomitant]
     Indication: ASTHMA
     Dosage: 1 SPRAY QOD
     Dates: start: 20071001, end: 20090601

REACTIONS (11)
  - ABDOMINAL DISTENSION [None]
  - FLATULENCE [None]
  - CONSTIPATION [None]
  - SCAR [None]
  - DIARRHOEA [None]
  - ANXIETY [None]
  - DYSPEPSIA [None]
  - DEPRESSION [None]
  - CHOLECYSTECTOMY [None]
  - CHOLELITHIASIS [None]
  - MEDICAL DIET [None]
